FAERS Safety Report 15133866 (Version 1)
Quarter: 2018Q3

REPORT INFORMATION
  Report Type: Spontaneous
  Country: FR (occurrence: FR)
  Receive Date: 20180712
  Receipt Date: 20180712
  Transmission Date: 20181010
  Serious: Yes (Other)
  Sender: FDA-Public Use
  Company Number: FR-ACORDA-ACO_151976_2018

PATIENT
  Age: 42 Year
  Sex: Female

DRUGS (1)
  1. QUTENZA [Suspect]
     Active Substance: CAPSAICIN
     Indication: NEURALGIA
     Dosage: 1 DF, 1/DAY
     Route: 003
     Dates: start: 20180627, end: 20180627

REACTIONS (4)
  - Burns second degree [Not Recovered/Not Resolved]
  - Blister [Not Recovered/Not Resolved]
  - Inappropriate schedule of drug administration [Unknown]
  - Burns first degree [Not Recovered/Not Resolved]

NARRATIVE: CASE EVENT DATE: 20180628
